FAERS Safety Report 25878191 (Version 1)
Quarter: 2025Q4

REPORT INFORMATION
  Report Type: Spontaneous
  Country: GB (occurrence: GB)
  Receive Date: 20251003
  Receipt Date: 20251003
  Transmission Date: 20260117
  Serious: Yes (Hospitalization)
  Sender: ELI LILLY AND COMPANY
  Company Number: GB-ELI_LILLY_AND_COMPANY-GB202509030446

PATIENT
  Sex: Female

DRUGS (1)
  1. MOUNJARO [Suspect]
     Active Substance: TIRZEPATIDE
     Indication: Product used for unknown indication
     Dosage: 2.5 MG, UNKNOWN
     Route: 065
     Dates: start: 202502

REACTIONS (2)
  - Sepsis [Unknown]
  - Off label use [Unknown]

NARRATIVE: CASE EVENT DATE: 20250917
